FAERS Safety Report 9850472 (Version 1)
Quarter: 2014Q1

REPORT INFORMATION
  Report Type: Report from Study
  Country: US (occurrence: US)
  Receive Date: 20140128
  Receipt Date: 20140128
  Transmission Date: 20141002
  Serious: Yes (Other)
  Sender: FDA-Public Use
  Company Number: US-JNJFOC-20140112386

PATIENT
  Sex: Female
  Weight: 76.2 kg

DRUGS (10)
  1. REMICADE [Suspect]
     Indication: RHEUMATOID ARTHRITIS
     Route: 042
     Dates: end: 2013
  2. REMICADE [Suspect]
     Indication: RHEUMATOID ARTHRITIS
     Route: 042
     Dates: start: 2013
  3. PLAQUENIL [Concomitant]
     Indication: ARTHRITIS
     Route: 048
  4. ZOCOR [Concomitant]
     Indication: BLOOD CHOLESTEROL INCREASED
     Route: 048
  5. GABAPENTIN [Concomitant]
     Indication: RESTLESS LEGS SYNDROME
     Dosage: REPORTED AS 900 MG/ 300 MG NIGHTLY
     Route: 048
     Dates: start: 2013
  6. GABAPENTIN [Concomitant]
     Indication: RESTLESS LEGS SYNDROME
     Route: 048
     Dates: start: 2013
  7. GABAPENTIN [Concomitant]
     Indication: NEUROPATHY PERIPHERAL
     Dosage: REPORTED AS 900 MG/ 300 MG NIGHTLY
     Route: 048
     Dates: start: 2013
  8. GABAPENTIN [Concomitant]
     Indication: NEUROPATHY PERIPHERAL
     Route: 048
     Dates: start: 2013
  9. NEXIUM [Concomitant]
     Indication: DYSPEPSIA
     Route: 048
     Dates: start: 2013
  10. ZYRTEC [Concomitant]
     Indication: MULTIPLE ALLERGIES
     Route: 065

REACTIONS (3)
  - Sinonasal papilloma [Not Recovered/Not Resolved]
  - Therapeutic response decreased [Recovered/Resolved]
  - Dysphonia [Not Recovered/Not Resolved]
